FAERS Safety Report 7721048-5 (Version None)
Quarter: 2011Q3

REPORT INFORMATION
  Report Type: 
  Country: None (occurrence: None)
  Receive Date: 20110831
  Receipt Date: 20101102
  Transmission Date: 20111222
  Serious: No
  Sender: FDA-Public Use
  Company Number: US-BAYER-201039548NA

PATIENT
  Sex: Female

DRUGS (4)
  1. CALTRATE [CALCIUM CARBONATE] [Concomitant]
  2. LISIN [Concomitant]
  3. FLEXERIL [Concomitant]
  4. CIPRO [Suspect]
     Indication: URINARY TRACT INFECTION
     Dosage: 500 MG, BID
     Route: 048
     Dates: start: 20101006, end: 20101016

REACTIONS (1)
  - DYSGEUSIA [None]
